FAERS Safety Report 21414349 (Version 1)
Quarter: 2022Q4

REPORT INFORMATION
  Report Type: Spontaneous
  Country: DE (occurrence: DE)
  Receive Date: 20221006
  Receipt Date: 20221006
  Transmission Date: 20230113
  Serious: Yes (Hospitalization)
  Sender: FDA-Public Use
  Company Number: DE-ADRED-07750-01

PATIENT
  Age: 54 Year
  Sex: Male

DRUGS (1)
  1. JANUMET [Suspect]
     Active Substance: METFORMIN HYDROCHLORIDE\SITAGLIPTIN PHOSPHATE
     Dosage: 1000|50 MG, 1-0-1-0; STRENGTH: 1G/50MG
     Route: 048

REACTIONS (4)
  - Abdominal pain [Unknown]
  - Abdominal pain upper [Unknown]
  - Vomiting [Unknown]
  - Acidosis [Unknown]
